FAERS Safety Report 13962905 (Version 1)
Quarter: 2017Q3

REPORT INFORMATION
  Report Type: Spontaneous
  Country: GB (occurrence: GB)
  Receive Date: 20170913
  Receipt Date: 20170913
  Transmission Date: 20171128
  Serious: Yes (Hospitalization)
  Sender: FDA-Public Use
  Company Number: GB-ACCORD-058233

PATIENT
  Age: 31 Year
  Sex: Female
  Weight: 63.5 kg

DRUGS (2)
  1. CITALOPRAM [Suspect]
     Active Substance: CITALOPRAM HYDROBROMIDE
     Indication: ANXIETY
     Route: 048
     Dates: start: 20141009, end: 20161210
  2. AMITRIPTYLINE [Suspect]
     Active Substance: AMITRIPTYLINE
     Indication: FIBROMYALGIA
     Route: 048
     Dates: end: 20170110

REACTIONS (3)
  - Chest pain [Unknown]
  - Off label use [Unknown]
  - Bundle branch block left [Not Recovered/Not Resolved]

NARRATIVE: CASE EVENT DATE: 2016
